FAERS Safety Report 7890297-8 (Version None)
Quarter: 2011Q4

REPORT INFORMATION
  Report Type: 
  Country: None (occurrence: None)
  Receive Date: 20111103
  Receipt Date: 20110805
  Transmission Date: 20120403
  Serious: No
  Sender: FDA-Public Use
  Company Number: US-AMGEN-USASP2011039925

PATIENT
  Age: 62 Year
  Sex: Female

DRUGS (9)
  1. TRICOR [Concomitant]
  2. ENBREL [Suspect]
     Indication: RHEUMATOID ARTHRITIS
     Dosage: 50 MG, QWK
  3. KLOR-CON [Concomitant]
  4. AMLODIPINE [Concomitant]
  5. CRESTOR [Concomitant]
  6. LEFLUNOMIDE [Concomitant]
  7. ATENOLOL [Concomitant]
  8. LOSARTAN/HCTZ GT [Concomitant]
  9. ASPIRIN [Concomitant]

REACTIONS (1)
  - ABDOMINAL PAIN UPPER [None]
